FAERS Safety Report 5121034-8 (Version None)
Quarter: 2006Q4

REPORT INFORMATION
  Report Type: 
  Country: None (occurrence: None)
  Receive Date: 20061002
  Receipt Date: 20060918
  Transmission Date: 20070319
  Serious: Yes (Hospitalization)
  Sender: FDA-Public Use
  Company Number: ES200605005327

PATIENT
  Age: 79 Year
  Sex: Female

DRUGS (6)
  1. FORTEO [Suspect]
     Dosage: 20 UG, DAILY (1/D), SUBCUTANEOUS
     Route: 058
     Dates: start: 20051115
  2. FORTEO PEN         (250MCG/ML) [Concomitant]
  3. CALCIUM (CALCIUM) [Concomitant]
  4. ANTIDEPRESSANTS [Concomitant]
  5. LORAZEPAM [Concomitant]
  6. PLANTABEN (ISPAGHULA HUSK) [Concomitant]

REACTIONS (2)
  - ANAL HAEMORRHAGE [None]
  - DIZZINESS [None]
